FAERS Safety Report 7221067-1 (Version None)
Quarter: 2011Q1

REPORT INFORMATION
  Report Type: 
  Country: None (occurrence: None)
  Receive Date: 20110112
  Receipt Date: 20110110
  Transmission Date: 20110831
  Serious: No
  Sender: FDA-Public Use
  Company Number: US-PFIZER INC-2011006062

PATIENT
  Sex: Female

DRUGS (3)
  1. TOVIAZ [Interacting]
     Dosage: UNK
     Route: 048
  2. BUPROPION [Interacting]
     Dosage: 100 MG, 1X/DAY
     Route: 048
  3. LYRICA [Suspect]
     Dosage: 100 MG, UNK
     Route: 048

REACTIONS (4)
  - HYPERSOMNIA [None]
  - IRRITABILITY [None]
  - SOMNOLENCE [None]
  - FATIGUE [None]
